FAERS Safety Report 4741419-9 (Version None)
Quarter: 2005Q3

REPORT INFORMATION
  Report Type: 
  Country: None (occurrence: None)
  Receive Date: 20050808
  Receipt Date: 20050727
  Transmission Date: 20060218
  Serious: Yes (Other)
  Sender: FDA-Public Use
  Company Number: 215866

PATIENT
  Sex: Female

DRUGS (11)
  1. HERCEPTIN [Suspect]
     Indication: BREAST CANCER METASTATIC
     Dosage: SEE IMAGE
     Dates: start: 19981203
  2. ZOMETA [Concomitant]
  3. SYNTHROID [Concomitant]
  4. PROTONIX [Concomitant]
  5. MULTIVITAMIN [Concomitant]
  6. VITAMIN B6 [Concomitant]
  7. FOLIC ACID [Concomitant]
  8. SELENIUM (SELENIUM) [Concomitant]
  9. CALCIUM (CALCIUM) [Concomitant]
  10. POTASSIUM + MAGNESIUM (MAGNESIUM NOS, POTASSIUM NOS) [Concomitant]
  11. VITAMIN C (ASCORBIC ACID) [Concomitant]

REACTIONS (5)
  - ALANINE AMINOTRANSFERASE INCREASED [None]
  - ASPARTATE AMINOTRANSFERASE INCREASED [None]
  - BLOOD ALKALINE PHOSPHATASE INCREASED [None]
  - BLOOD BILIRUBIN INCREASED [None]
  - DILATATION INTRAHEPATIC DUCT ACQUIRED [None]
